FAERS Safety Report 4856223-0 (Version None)
Quarter: 2005Q4

REPORT INFORMATION
  Report Type: 
  Country: None (occurrence: None)
  Receive Date: 20051216
  Receipt Date: 20051207
  Transmission Date: 20060501
  Serious: Yes (Death, Hospitalization)
  Sender: FDA-Public Use
  Company Number: US-AVENTIS-200520888GDDC

PATIENT
  Age: 72 Year
  Sex: Male
  Weight: 64.5 kg

DRUGS (14)
  1. TAXOTERE [Suspect]
     Indication: NON-SMALL CELL LUNG CANCER
     Route: 042
     Dates: start: 20050930, end: 20051014
  2. GEMZAR [Suspect]
     Indication: NON-SMALL CELL LUNG CANCER
     Route: 042
     Dates: start: 20050930, end: 20051014
  3. ALBUTEROL [Concomitant]
     Indication: CHRONIC OBSTRUCTIVE PULMONARY DISEASE
     Dosage: DOSE: 2 PUFFS
     Route: 055
     Dates: start: 19940101, end: 20051029
  4. AVAPRO [Concomitant]
     Indication: HYPERTENSION
     Dates: start: 20010101, end: 20051026
  5. NITROQUICK [Concomitant]
     Indication: CHEST PAIN
     Route: 060
     Dates: start: 19940101, end: 20051026
  6. HYDROCODONE [Concomitant]
     Indication: PAIN
     Dosage: DOSE: 500 MG EVERY 4-6 HOURS
     Dates: start: 19940101, end: 20051026
  7. AMITRIPTYLINE HCL [Concomitant]
     Dates: start: 20050801, end: 20051026
  8. VALIUM [Concomitant]
     Indication: INSOMNIA
     Dates: start: 20050801, end: 20051026
  9. REGLAN [Concomitant]
     Dates: start: 20050801, end: 20051026
  10. BETAPACE [Concomitant]
     Indication: ARRHYTHMIA
     Dates: start: 20010101, end: 20051029
  11. PREVACID [Concomitant]
     Indication: GASTROOESOPHAGEAL REFLUX DISEASE
     Dates: start: 20050801, end: 20051029
  12. IMODIUM [Concomitant]
     Indication: DIARRHOEA
     Dosage: DOSE: 1 WITH LOOSE STOOL
     Dates: start: 20050901, end: 20051027
  13. LOMOTIL [Concomitant]
     Indication: DIARRHOEA
     Dosage: DOSE: 1 WITH LOOSE STOLLS
     Dates: start: 20050901, end: 20051027
  14. ATIVAN [Concomitant]
     Indication: NAUSEA
     Dosage: DOSE: 0.25 MG EVERY 12 HOURS

REACTIONS (13)
  - ASTHENIA [None]
  - CARDIOMEGALY [None]
  - CEREBROVASCULAR ACCIDENT [None]
  - DEATH [None]
  - DEHYDRATION [None]
  - DIARRHOEA [None]
  - ELECTROCARDIOGRAM ST-T CHANGE [None]
  - FALL [None]
  - NAUSEA [None]
  - PLEURAL EFFUSION [None]
  - PULMONARY EMBOLISM [None]
  - PYREXIA [None]
  - SMALL INTESTINAL OBSTRUCTION [None]
